FAERS Safety Report 9158089 (Version 1)
Quarter: 2013Q1

REPORT INFORMATION
  Report Type: Spontaneous
  Country: IT (occurrence: None)
  Receive Date: 20130222
  Receipt Date: 20130222
  Transmission Date: 20140127
  Serious: Yes (Other)
  Sender: FDA-Public Use
  Company Number: DSM-2013-00251

PATIENT
  Age: 66 Year
  Sex: Male

DRUGS (1)
  1. PLAUNAZIDE [Suspect]
     Indication: HYPERTENSION
     Dosage: 20/12.5 MG, ORAL
     Dates: start: 20121211, end: 20130119

REACTIONS (6)
  - Hypotension [None]
  - Malaise [None]
  - Nausea [None]
  - Syncope [None]
  - Vertigo [None]
  - Bladder sphincter atony [None]
